FAERS Safety Report 8905595 (Version 2)
Quarter: 2013Q2

REPORT INFORMATION
  Report Type: Other
  Country: DK (occurrence: DK)
  Receive Date: 20121113
  Receipt Date: 20130429
  Transmission Date: 20140414
  Serious: Yes (Disabling)
  Sender: FDA-Public Use
  Company Number: DK-ARROW-2012-18988

PATIENT
  Age: 62 Year
  Sex: Male

DRUGS (6)
  1. SIMVASTATIN (UNKNOWN) [Suspect]
     Indication: HYPERTRIGLYCERIDAEMIA
     Dosage: 10 MG, DAILY
     Route: 065
     Dates: start: 20080310, end: 20090917
  2. SIMVASTATIN (UNKNOWN) [Suspect]
     Dosage: 40 MG, DAILY
     Route: 065
     Dates: start: 20090917, end: 20090920
  3. METFORMIN HYDROCHLORIDE [Concomitant]
     Indication: PRODUCT USED FOR UNKNOWN INDICATION
     Dosage: 500 MG, UNKNOWN
     Route: 048
  4. ALPRAZOLAM [Concomitant]
     Indication: PRODUCT USED FOR UNKNOWN INDICATION
     Dosage: 0.5 MG, UNKNOWN
     Route: 048
  5. ORABET                             /00036101/ [Concomitant]
     Indication: PRODUCT USED FOR UNKNOWN INDICATION
     Dosage: 500 MG, UNK
  6. TAFIL [Concomitant]
     Indication: PRODUCT USED FOR UNKNOWN INDICATION
     Dosage: 0.5 MG, UNK

REACTIONS (13)
  - Blood creatine phosphokinase increased [Not Recovered/Not Resolved]
  - Alanine aminotransferase increased [Not Recovered/Not Resolved]
  - Feeling hot [Not Recovered/Not Resolved]
  - Pruritus generalised [Not Recovered/Not Resolved]
  - Malaise [Unknown]
  - Myalgia [Unknown]
  - Myopathy [Unknown]
  - Weight decreased [Not Recovered/Not Resolved]
  - Decreased immune responsiveness [Not Recovered/Not Resolved]
  - Muscle atrophy [Unknown]
  - Ejaculation disorder [Not Recovered/Not Resolved]
  - Cataract [Not Recovered/Not Resolved]
  - Tooth disorder [Not Recovered/Not Resolved]
